FAERS Safety Report 7541549-2 (Version None)
Quarter: 2011Q2

REPORT INFORMATION
  Report Type: 
  Country: None (occurrence: None)
  Receive Date: 20110613
  Receipt Date: 20110607
  Transmission Date: 20111010
  Serious: No
  Sender: FDA-Public Use
  Company Number: US-PFIZER INC-2011124378

PATIENT
  Sex: Female
  Weight: 86.17 kg

DRUGS (2)
  1. PRISTIQ [Suspect]
     Indication: DEPRESSION
     Dosage: 50 MG, 1X/DAY
     Route: 048
     Dates: start: 20110301, end: 20110603
  2. LOTRONEX [Concomitant]
     Indication: IRRITABLE BOWEL SYNDROME
     Dosage: 1 MG

REACTIONS (9)
  - MIGRAINE [None]
  - HYPOAESTHESIA [None]
  - MALAISE [None]
  - DYSPNOEA [None]
  - HYPERHIDROSIS [None]
  - PANIC ATTACK [None]
  - ANGER [None]
  - DIZZINESS [None]
  - NAUSEA [None]
